FAERS Safety Report 20252055 (Version 2)
Quarter: 2022Q4

REPORT INFORMATION
  Report Type: Report from Study
  Country: US (occurrence: US)
  Receive Date: 20211229
  Receipt Date: 20221228
  Transmission Date: 20230113
  Serious: Yes (Other)
  Sender: FDA-Public Use
  Company Number: US-CLOVIS ONCOLOGY-CLO-2021-000571

PATIENT
  Sex: Female

DRUGS (7)
  1. RUBRACA [Suspect]
     Active Substance: RUCAPARIB CAMSYLATE
     Indication: Ovarian cancer
     Dosage: 200 MILLIGRAM, BID
     Route: 048
     Dates: start: 20210323
  2. RUBRACA [Suspect]
     Active Substance: RUCAPARIB CAMSYLATE
     Indication: Ovarian cancer
     Dosage: 200 MILLIGRAM, BID
     Route: 048
     Dates: start: 20210310
  3. RUBRACA [Suspect]
     Active Substance: RUCAPARIB CAMSYLATE
     Dosage: 200 MILLIGRAM, BID
     Route: 048
     Dates: start: 202103
  4. RUBRACA [Suspect]
     Active Substance: RUCAPARIB CAMSYLATE
     Dosage: UNK, QD
  5. RUBRACA [Suspect]
     Active Substance: RUCAPARIB CAMSYLATE
     Dosage: REDUCED TO UNKNOWN DOSAGE
  6. RUBRACA [Suspect]
     Active Substance: RUCAPARIB CAMSYLATE
     Dosage: 200 MILLIGRAM, BID
     Route: 048
     Dates: start: 202103
  7. BREO ELLIPTA [Concomitant]
     Active Substance: FLUTICASONE FUROATE\VILANTEROL TRIFENATATE
     Indication: Asthma

REACTIONS (19)
  - Malignant neoplasm progression [Recovered/Resolved]
  - Hot flush [Recovered/Resolved]
  - Extrasystoles [Unknown]
  - Urinary tract infection [Unknown]
  - Fungal infection [Recovering/Resolving]
  - Blood glucose increased [Recovering/Resolving]
  - Feeling abnormal [Unknown]
  - Oropharyngeal pain [Unknown]
  - White blood cell count abnormal [Unknown]
  - Headache [Unknown]
  - Constipation [Not Recovered/Not Resolved]
  - Insomnia [Unknown]
  - Nasopharyngitis [Unknown]
  - Abdominal distension [Not Recovered/Not Resolved]
  - Pyrexia [Unknown]
  - Fatigue [Not Recovered/Not Resolved]
  - Nausea [Not Recovered/Not Resolved]
  - Malaise [Unknown]
  - Product dose omission issue [Unknown]

NARRATIVE: CASE EVENT DATE: 20210101
